FAERS Safety Report 20723115 (Version 1)
Quarter: 2022Q2

REPORT INFORMATION
  Report Type: Spontaneous
  Country: JP (occurrence: JP)
  Receive Date: 20220419
  Receipt Date: 20220419
  Transmission Date: 20220721
  Serious: Yes (Other)
  Sender: FDA-Public Use
  Company Number: JP-SUNPHARMA-2022R1-332256AA

PATIENT
  Age: 81 Year
  Sex: Male

DRUGS (1)
  1. ILUMYA [Suspect]
     Active Substance: TILDRAKIZUMAB-ASMN
     Indication: Psoriasis
     Dosage: 0.4 WEEKS AND THEREAFTER 12 WEEKS INTERVAL
     Route: 058
     Dates: start: 20210301

REACTIONS (1)
  - Liver disorder [Unknown]

NARRATIVE: CASE EVENT DATE: 20220405
